FAERS Safety Report 20215641 (Version 9)
Quarter: 2022Q4

REPORT INFORMATION
  Report Type: Spontaneous
  Country: CA (occurrence: CA)
  Receive Date: 20211222
  Receipt Date: 20221013
  Transmission Date: 20230113
  Serious: Yes (Hospitalization)
  Sender: FDA-Public Use
  Company Number: CA-CELLTRION INC.-2021CA017453

PATIENT

DRUGS (9)
  1. INFLECTRA [Suspect]
     Active Substance: INFLIXIMAB-DYYB
     Indication: Colitis ulcerative
     Dosage: 435 MG, 0, 2, INDUCTION DOSE
     Route: 042
     Dates: start: 20211110
  2. INFLECTRA [Suspect]
     Active Substance: INFLIXIMAB-DYYB
     Dosage: 435 MG, INDUCTION Q 0 , 2, 6 WEEK THEN EVERY 8 WEEKS, DOSE UNKNOWN
     Route: 042
     Dates: start: 20211110, end: 202111
  3. INFLECTRA [Suspect]
     Active Substance: INFLIXIMAB-DYYB
     Dosage: 435 MG, 0, 2, INDUCTION DOSE
     Route: 042
     Dates: start: 20211124
  4. INFLECTRA [Suspect]
     Active Substance: INFLIXIMAB-DYYB
     Dosage: 840 MG, 3RD INDUCTION DOSE, THEN EVERY 8 WEEKS, EVERY 8 WEEKS
     Route: 042
     Dates: start: 20211207
  5. INFLECTRA [Suspect]
     Active Substance: INFLIXIMAB-DYYB
     Dosage: 840 MG, EVERY 8 WEEKS
     Route: 042
     Dates: start: 20220203
  6. INFLECTRA [Suspect]
     Active Substance: INFLIXIMAB-DYYB
     Dosage: 840 MG, EVERY 8 WEEKS
     Route: 042
     Dates: start: 20220530
  7. INFLECTRA [Suspect]
     Active Substance: INFLIXIMAB-DYYB
     Dosage: 840 MG, EVERY 8 WEEKS
     Route: 042
     Dates: start: 20220725
  8. METHOTREXATE [Concomitant]
     Active Substance: METHOTREXATE
     Dosage: UNK
  9. PREDNISONE [Concomitant]
     Active Substance: PREDNISONE
     Dosage: UNK

REACTIONS (11)
  - Condition aggravated [Recovering/Resolving]
  - Off label use [Unknown]
  - Off label use [Unknown]
  - Off label use [Unknown]
  - Colon injury [Unknown]
  - Intentional product use issue [Unknown]
  - Blood pressure diastolic increased [Not Recovered/Not Resolved]
  - Blood pressure increased [Unknown]
  - Heart rate decreased [Recovered/Resolved]
  - Abdominal discomfort [Recovered/Resolved]
  - Proctitis [Not Recovered/Not Resolved]

NARRATIVE: CASE EVENT DATE: 20211124
